FAERS Safety Report 6891067-X (Version None)
Quarter: 2010Q3

REPORT INFORMATION
  Report Type: 
  Country: None (occurrence: None)
  Receive Date: 20100731
  Receipt Date: 20090520
  Transmission Date: 20110219
  Serious: No
  Sender: FDA-Public Use
  Company Number: US-PFIZER INC-2009197084

PATIENT
  Sex: Female

DRUGS (1)
  1. LIPITOR [Suspect]
     Indication: DYSLIPIDAEMIA
     Dosage: 80 MG, UNK
     Route: 048

REACTIONS (3)
  - ARTHRALGIA [None]
  - MYALGIA [None]
  - PAIN IN EXTREMITY [None]
